FAERS Safety Report 25626340 (Version 2)
Quarter: 2025Q3

REPORT INFORMATION
  Report Type: Spontaneous
  Country: EU (occurrence: EU)
  Receive Date: 20250731
  Receipt Date: 20250827
  Transmission Date: 20251021
  Serious: Yes (Death)
  Sender: RANBAXY
  Company Number: EU-SUN PHARMACEUTICAL INDUSTRIES LTD-2025RR-519907

PATIENT
  Age: 68 Year
  Sex: Male

DRUGS (4)
  1. BORTEZOMIB [Suspect]
     Active Substance: BORTEZOMIB
     Indication: Plasma cell myeloma
     Route: 058
     Dates: start: 20250403, end: 20250403
  2. LENALIDOMIDE [Suspect]
     Active Substance: LENALIDOMIDE
     Indication: Plasma cell myeloma
     Route: 058
     Dates: start: 20250403, end: 20250403
  3. TOLODODEKIN ALFA [Suspect]
     Active Substance: TOLODODEKIN ALFA
     Indication: Plasma cell myeloma
     Route: 058
     Dates: start: 20250403, end: 20250403
  4. DEXAMETHASONE [Suspect]
     Active Substance: DEXAMETHASONE
     Indication: Plasma cell myeloma
     Route: 040
     Dates: start: 20250403, end: 20250403

REACTIONS (3)
  - Acute respiratory failure [Fatal]
  - Hypotension [Fatal]
  - Anuria [Fatal]

NARRATIVE: CASE EVENT DATE: 20250403
